FAERS Safety Report 24140358 (Version 2)
Quarter: 2024Q3

REPORT INFORMATION
  Report Type: Spontaneous
  Country: US (occurrence: US)
  Receive Date: 20240726
  Receipt Date: 20240726
  Transmission Date: 20241016
  Serious: Yes (Other)
  Sender: ROCHE
  Company Number: US-CHEPLA-2024009087

PATIENT
  Age: 71 Year
  Sex: Male

DRUGS (10)
  1. VALGANCICLOVIR [Suspect]
     Active Substance: VALGANCICLOVIR
     Indication: Cytomegalovirus viraemia
     Dosage: BID; FOR 2 MONTHS AT WHICH POINT HE WAS TITRATED UP TO 900 MG EVERY DAY FOR ANOTHER MONTH.
     Route: 048
  2. FOSCARNET [Suspect]
     Active Substance: FOSCARNET
     Indication: Cytomegalovirus viraemia
     Dosage: 2.4 MG/0.1 CC WEEKLY FOR 4 WEEKS; ROA: INTRAVITREAL USE
     Route: 031
  3. MYCOPHENOLIC ACID [Concomitant]
     Active Substance: MYCOPHENOLIC ACID
     Indication: Retinal vein occlusion
     Route: 065
  4. PREDNISOLONE [Concomitant]
     Active Substance: PREDNISOLONE
     Indication: Retinal vein occlusion
     Dosage: 1 DROP 4 TIMES A DAY
     Route: 065
  5. PREDNISOLONE [Concomitant]
     Active Substance: PREDNISOLONE
     Route: 065
  6. DEXAMETHASONE [Concomitant]
     Active Substance: DEXAMETHASONE
     Indication: Retinal vein occlusion
     Dosage: MULTIPLE INTRAVITREAL DEXAMETHASONE IMPLANTS FOR 5 YEARS ; ROA: INTRAVITREAL USE
     Route: 031
  7. DEXAMETHASONE [Concomitant]
     Active Substance: DEXAMETHASONE
     Dosage: ROA: INTRAVITREAL USE
     Route: 031
  8. BELATACEPT [Concomitant]
     Active Substance: BELATACEPT
     Indication: Retinal vein occlusion
     Route: 065
  9. PREDNISONE [Concomitant]
     Active Substance: PREDNISONE
     Indication: Retinal vein occlusion
     Route: 048
  10. AFLIBERCEPT [Concomitant]
     Active Substance: AFLIBERCEPT
     Indication: Retinal vein occlusion
     Dosage: 2 MG/0.05
     Route: 065

REACTIONS (3)
  - Neutropenia [Unknown]
  - Off label use [Unknown]
  - Cytomegalovirus chorioretinitis [Recovered/Resolved]
